FAERS Safety Report 19021101 (Version 1)
Quarter: 2021Q1

REPORT INFORMATION
  Report Type: Report from Study
  Country: CA (occurrence: CA)
  Receive Date: 20210317
  Receipt Date: 20210317
  Transmission Date: 20210420
  Serious: Yes (Death)
  Sender: FDA-Public Use
  Company Number: CA-JNJFOC-20210310170

PATIENT
  Age: 38 Year
  Sex: Female

DRUGS (6)
  1. SELEXIPAG [Suspect]
     Active Substance: SELEXIPAG
     Indication: PULMONARY ARTERIAL HYPERTENSION
     Route: 048
     Dates: start: 20210128
  2. ADCIRCA [Concomitant]
     Active Substance: TADALAFIL
  3. RAMIPRIL. [Concomitant]
     Active Substance: RAMIPRIL
  4. BOSENTAN. [Suspect]
     Active Substance: BOSENTAN
     Indication: PULMONARY ARTERIAL HYPERTENSION
     Route: 048
     Dates: start: 20190221
  5. SIMPONI [Concomitant]
     Active Substance: GOLIMUMAB
  6. AMLODIPINE [Concomitant]
     Active Substance: AMLODIPINE BESYLATE

REACTIONS (7)
  - Herpes zoster [Unknown]
  - Headache [Unknown]
  - Death [Fatal]
  - Product use in unapproved indication [Unknown]
  - Pain in jaw [Unknown]
  - Diarrhoea [Unknown]
  - Off label use [Unknown]

NARRATIVE: CASE EVENT DATE: 20190221
